FAERS Safety Report 8806133 (Version 1)
Quarter: 2012Q4

REPORT INFORMATION
  Report Type: Spontaneous
  Country: CO (occurrence: None)
  Receive Date: 20120918
  Receipt Date: 20120918
  Transmission Date: 20130627
  Serious: Yes (Other)
  Sender: FDA-Public Use
  Company Number: DSU-2012-07170

PATIENT
  Age: 86 Year
  Sex: Female

DRUGS (2)
  1. OLMETEC [Suspect]
     Indication: HYPERTENSION
     Route: 048
     Dates: start: 2007
  2. AMLODIPINE [Concomitant]

REACTIONS (4)
  - Blood pressure increased [None]
  - Syncope [None]
  - Feeling of despair [None]
  - Temperature regulation disorder [None]
